FAERS Safety Report 23965230 (Version 2)
Quarter: 2024Q2

REPORT INFORMATION
  Report Type: Spontaneous
  Country: GB (occurrence: GB)
  Receive Date: 20240612
  Receipt Date: 20240615
  Transmission Date: 20240715
  Serious: Yes (Hospitalization, Disabling, Other)
  Sender: FDA-Public Use
  Company Number: None

PATIENT
  Age: 66 Year
  Sex: Male
  Weight: 60 kg

DRUGS (3)
  1. LACOSAMIDE [Suspect]
     Active Substance: LACOSAMIDE
     Indication: Epilepsy
     Dosage: 50 MILLIGRAM, 2X/DAY (BID) (50MG TWICE A DAY MORNING AND NIGHT
     Dates: start: 20240204, end: 20240531
  2. LACOSAMIDE [Suspect]
     Active Substance: LACOSAMIDE
     Dosage: 50 MILLIGRAM, 2X/DAY (BID), MORNING AND NIGHT.UPPED TO 2X 50 MG ON 3/5/24
     Dates: start: 20240402, end: 20240531
  3. LAMOTRIGINE [Concomitant]
     Active Substance: LAMOTRIGINE
     Indication: Epilepsy
     Dosage: UNK

REACTIONS (4)
  - Amnesia [Not Recovered/Not Resolved]
  - Medication error [Unknown]
  - Delirium [Unknown]
  - Headache [Unknown]

NARRATIVE: CASE EVENT DATE: 20240501
